FAERS Safety Report 4323505-0 (Version None)
Quarter: 2004Q1

REPORT INFORMATION
  Report Type: 
  Country: None (occurrence: None)
  Receive Date: 20040325
  Receipt Date: 20040316
  Transmission Date: 20041129
  Serious: Yes (Other)
  Sender: FDA-Public Use
  Company Number: PHNU2004DE01238

PATIENT
  Sex: Female

DRUGS (1)
  1. LUDIOMIL [Suspect]
     Dosage: 75 MG/DAY
     Route: 048

REACTIONS (3)
  - ALVEOLITIS ALLERGIC [None]
  - INTERSTITIAL LUNG DISEASE [None]
  - PNEUMONIA [None]
